FAERS Safety Report 7699194-4 (Version None)
Quarter: 2011Q3

REPORT INFORMATION
  Report Type: 
  Country: None (occurrence: None)
  Receive Date: 20110819
  Receipt Date: 20110809
  Transmission Date: 20111222
  Serious: No
  Sender: FDA-Public Use
  Company Number: US-BAYER-2011-062073

PATIENT
  Age: 30 Year
  Sex: Female

DRUGS (3)
  1. ADVIL LIQUI-GELS [Concomitant]
     Indication: PREMEDICATION
  2. INTERFERON BETA-1B [Suspect]
     Indication: RELAPSING-REMITTING MULTIPLE SCLEROSIS
     Dosage: 2 MIU, QOD
     Route: 058
     Dates: start: 20110713
  3. INTERFERON BETA-1B [Suspect]
     Dosage: 6 MIU, QOD
     Route: 058

REACTIONS (4)
  - BONE PAIN [None]
  - PRURITUS [None]
  - ALOPECIA [None]
  - INJECTION SITE HAEMATOMA [None]
